FAERS Safety Report 12976903 (Version 2)
Quarter: 2016Q4

REPORT INFORMATION
  Report Type: Report from Study
  Country: ZA (occurrence: ZA)
  Receive Date: 20161128
  Receipt Date: 20161208
  Transmission Date: 20170207
  Serious: Yes (Death, Hospitalization)
  Sender: FDA-Public Use
  Company Number: PHHY2016ZA079571

PATIENT
  Age: 84 Year
  Sex: Male
  Weight: 100 kg

DRUGS (12)
  1. METFORMIN [Concomitant]
     Active Substance: METFORMIN HYDROCHLORIDE
     Indication: DIABETES MELLITUS
     Dosage: 850 MG, UNK
     Route: 065
  2. EUTHYROX [Concomitant]
     Active Substance: LEVOTHYROXINE SODIUM
     Indication: HYPOTHYROIDISM
     Dosage: 100 MG, UNK
     Route: 048
     Dates: start: 2001
  3. VECTORYL [Concomitant]
     Active Substance: PERINDOPRIL ERBUMINE
     Indication: HYPERTENSION
     Dosage: 4 MG, QD
     Route: 048
     Dates: start: 2013, end: 201604
  4. DABRAFENIB [Suspect]
     Active Substance: DABRAFENIB
     Indication: MALIGNANT MELANOMA
     Dosage: 75 MG, BID
     Route: 048
     Dates: start: 20160405, end: 20160606
  5. LASIX [Concomitant]
     Active Substance: FUROSEMIDE
     Indication: CARDIAC DISORDER
     Dosage: 40 MG, UNK
     Route: 048
     Dates: start: 20160601
  6. METFORMIN [Concomitant]
     Active Substance: METFORMIN HYDROCHLORIDE
     Indication: TYPE 2 DIABETES MELLITUS
     Dosage: 500 MG, UNK
     Route: 048
     Dates: start: 2001
  7. SLOW K [Concomitant]
     Active Substance: POTASSIUM CHLORIDE
     Indication: HYPOKALAEMIA
     Dosage: 01 DF, UNK
     Route: 048
     Dates: start: 2010
  8. MACRODANTIN [Concomitant]
     Active Substance: NITROFURANTOIN
     Indication: URINARY TRACT INFECTION
     Dosage: 100 MG, UNK
     Route: 048
     Dates: start: 20160510
  9. TRAMETINIB [Suspect]
     Active Substance: TRAMETINIB
     Indication: MALIGNANT MELANOMA
     Dosage: 2 MG, QD
     Route: 048
     Dates: start: 20160405, end: 20160606
  10. VECTORYL PLUS [Concomitant]
     Indication: HYPERTENSION
     Dosage: 01 DF, UNK
     Route: 048
     Dates: start: 2013, end: 201604
  11. NOVORAPID [Concomitant]
     Active Substance: INSULIN ASPART
     Indication: HYPERGLYCAEMIA
     Dosage: 03 U, UNK
     Route: 058
     Dates: start: 20160606
  12. STILNOX [Concomitant]
     Active Substance: ZOLPIDEM TARTRATE
     Indication: INSOMNIA
     Dosage: 10 MG, UNK
     Route: 048
     Dates: start: 201510

REACTIONS (15)
  - Fall [Unknown]
  - Hyperglycaemia [Recovering/Resolving]
  - Diarrhoea [Recovered/Resolved]
  - Glomerular filtration rate decreased [Unknown]
  - Malignant melanoma [Fatal]
  - Haemoglobin decreased [Unknown]
  - Multiple organ dysfunction syndrome [Fatal]
  - Dry mouth [Not Recovered/Not Resolved]
  - Blood urea increased [Unknown]
  - Asthenia [Fatal]
  - Back pain [Unknown]
  - Blood creatinine increased [Unknown]
  - Hepatic failure [Fatal]
  - Jaundice [Fatal]
  - Eating disorder [Unknown]

NARRATIVE: CASE EVENT DATE: 20160405
